FAERS Safety Report 8494660-6 (Version None)
Quarter: 2012Q3

REPORT INFORMATION
  Report Type: 
  Country: None (occurrence: None)
  Receive Date: 20120709
  Receipt Date: 20120703
  Transmission Date: 20120928
  Serious: Yes (Other)
  Sender: FDA-Public Use
  Company Number: PHHY2012NL057011

PATIENT
  Age: 46 Year
  Sex: Male

DRUGS (2)
  1. ATROPINE [Concomitant]
     Dosage: 0.25 MG, UNK
     Route: 058
  2. IRINOTECAN HCL [Suspect]
     Dosage: 3-WEEKLY; 350 MG/M2

REACTIONS (3)
  - TONGUE PARALYSIS [None]
  - ALOPECIA [None]
  - DYSARTHRIA [None]
